FAERS Safety Report 7306257-1 (Version None)
Quarter: 2011Q1

REPORT INFORMATION
  Report Type: 
  Country: None (occurrence: None)
  Receive Date: 20110209
  Receipt Date: 20110125
  Transmission Date: 20110831
  Serious: Yes (Other)
  Sender: FDA-Public Use
  Company Number: 11-000091

PATIENT
  Age: 68 Year
  Sex: Female
  Weight: 72.6 kg

DRUGS (2)
  1. ESTRACE [Suspect]
     Indication: ATROPHIC VULVOVAGINITIS
     Dosage: 4 G, TWICE WEEKLY, VAGINAL
     Route: 067
     Dates: start: 20101201, end: 20110117
  2. LEVOTHYROXINE SODIUM [Concomitant]

REACTIONS (13)
  - FEELING ABNORMAL [None]
  - FLUSHING [None]
  - INCORRECT DOSE ADMINISTERED [None]
  - NERVOUSNESS [None]
  - ABDOMINAL DISTENSION [None]
  - GROIN PAIN [None]
  - HEART RATE IRREGULAR [None]
  - HOT FLUSH [None]
  - HYPERTENSION [None]
  - HEADACHE [None]
  - FLANK PAIN [None]
  - FEELING HOT [None]
  - BREAST TENDERNESS [None]
